FAERS Safety Report 4603678-2 (Version None)
Quarter: 2005Q1

REPORT INFORMATION
  Report Type: 
  Country: None (occurrence: None)
  Receive Date: 20050310
  Receipt Date: 20050203
  Transmission Date: 20050727
  Serious: Yes (Other)
  Sender: FDA-Public Use
  Company Number: 200510435FR

PATIENT
  Age: 52 Year
  Sex: Male
  Weight: 71 kg

DRUGS (5)
  1. ARAVA [Suspect]
     Indication: RHEUMATOID ARTHRITIS
     Route: 048
     Dates: start: 20030701, end: 20041215
  2. CORTANCYL [Concomitant]
     Indication: RHEUMATOID ARTHRITIS
     Route: 048
  3. DI-ANTALVIC [Concomitant]
     Route: 048
  4. KALEORID [Concomitant]
     Route: 048
  5. FLECAINE [Concomitant]

REACTIONS (3)
  - BALANCE DISORDER [None]
  - HYPOACUSIS [None]
  - TENSION HEADACHE [None]
